FAERS Safety Report 21389081 (Version 1)
Quarter: 2022Q3

REPORT INFORMATION
  Report Type: Spontaneous
  Country: NL (occurrence: NL)
  Receive Date: 20220929
  Receipt Date: 20220929
  Transmission Date: 20221026
  Serious: Yes (Hospitalization, Other)
  Sender: FDA-Public Use
  Company Number: None

PATIENT
  Age: 68 Year
  Sex: Male

DRUGS (6)
  1. FLUCONAZOLE [Suspect]
     Active Substance: FLUCONAZOLE
     Indication: Bladder candidiasis
     Dosage: 200 MILLIGRAM DAILY; 1 X PER DAY 1 CAPSULE, FLUCONAZOL 200MG / BRAND NAME NOT SPECIFIED, UNIT DOSE:
     Dates: start: 20210224, end: 20210323
  2. VESICARE [Concomitant]
     Active Substance: SOLIFENACIN SUCCINATE
     Indication: Product used for unknown indication
     Dosage: SOLIFENACIN 5MG / VESICARE TABLET FILM COATED 5MG, THERAPY START DATE AND END DATE : ASKU
  3. TAMSULOSIN [Concomitant]
     Active Substance: TAMSULOSIN
     Indication: Product used for unknown indication
     Dosage: TAMSULOSIN TABLET MGA 0.4MG / BRAND NAME NOT SPECIFIED, THERAPY START DATE AND END DATE : ASKU
  4. METFORMIN HYDROCHLORIDE [Concomitant]
     Active Substance: METFORMIN HYDROCHLORIDE
     Indication: Product used for unknown indication
     Dosage: METFORMIN HYDROCHLORIDE / BRAND NAME NOT SPECIFIED, THERAPY START DATE AND END DATE : ASKU
  5. INSULIN GLARGINE [Concomitant]
     Active Substance: INSULIN GLARGINE
     Indication: Product used for unknown indication
     Dosage: INSULIN GLARGINE 100E/ML INJVLST / BRAND NAME NOT SPECIFIED, THERAPY START DATE AND END DATE : ASKU
  6. GLICLAZIDE [Concomitant]
     Active Substance: GLICLAZIDE
     Indication: Product used for unknown indication
     Dosage: GLLICLAZIDE TABLET MGA 30MG / BRAND NAME NOT SPECIFIED, THERAPY START DATE AND END DATE : ASKU

REACTIONS (6)
  - Tubulointerstitial nephritis [Unknown]
  - Hyperkalaemia [Unknown]
  - Malaise [Unknown]
  - Nausea [Unknown]
  - Rash [Unknown]
  - Dizziness [Unknown]
